FAERS Safety Report 17855070 (Version 2)
Quarter: 2022Q1

REPORT INFORMATION
  Report Type: Report from Study
  Country: US (occurrence: US)
  Receive Date: 20200603
  Receipt Date: 20220127
  Transmission Date: 20220423
  Serious: Yes (Other)
  Sender: FDA-Public Use
  Company Number: US-TAKEDA-2020TUS024432

PATIENT
  Sex: Female

DRUGS (3)
  1. DEXLANSOPRAZOLE [Suspect]
     Active Substance: DEXLANSOPRAZOLE
     Indication: Gastrooesophageal reflux disease
     Dosage: 30 MILLIGRAM, QD
     Route: 065
     Dates: start: 2006, end: 20200513
  2. DEXLANSOPRAZOLE [Suspect]
     Active Substance: DEXLANSOPRAZOLE
     Dosage: 60 MILLIGRAM, QD
     Route: 065
     Dates: start: 2006, end: 20200513
  3. DEXLANSOPRAZOLE [Suspect]
     Active Substance: DEXLANSOPRAZOLE
     Dosage: 60 MILLIGRAM, QD
     Route: 065
     Dates: start: 20200514

REACTIONS (10)
  - Bradycardia [Not Recovered/Not Resolved]
  - Incorrect product administration duration [Unknown]
  - Hypoglycaemia [Not Recovered/Not Resolved]
  - Abdominal distension [Unknown]
  - Fatigue [Unknown]
  - Hunger [Not Recovered/Not Resolved]
  - Condition aggravated [Unknown]
  - Appetite disorder [Not Recovered/Not Resolved]
  - Overdose [Unknown]
  - Gastrooesophageal reflux disease [Unknown]

NARRATIVE: CASE EVENT DATE: 20060101
